FAERS Safety Report 6373928-3 (Version None)
Quarter: 2009Q3

REPORT INFORMATION
  Report Type: 
  Country: None (occurrence: None)
  Receive Date: 20090924
  Receipt Date: 20090701
  Transmission Date: 20100115
  Serious: Yes (Other)
  Sender: FDA-Public Use
  Company Number: US-ASTRAZENECA-2009UW12842

PATIENT
  Age: 55 Year
  Sex: Male

DRUGS (17)
  1. SEROQUEL [Suspect]
     Indication: BIPOLAR I DISORDER
     Route: 048
  2. SEROQUEL [Suspect]
     Indication: THINKING ABNORMAL
     Route: 048
  3. SEROQUEL [Suspect]
     Route: 048
  4. SEROQUEL [Suspect]
     Route: 048
  5. SEROQUEL [Suspect]
     Dosage: EVERY TWO TO THREE DAYS
     Route: 048
  6. SEROQUEL [Suspect]
     Dosage: EVERY TWO TO THREE DAYS
     Route: 048
  7. SEROQUEL [Suspect]
     Dosage: EVERY THREE DAYS
     Route: 048
  8. SEROQUEL [Suspect]
     Dosage: EVERY THREE DAYS
     Route: 048
  9. SEROQUEL [Suspect]
     Dosage: EVERY TWO DAYS
     Route: 048
  10. SEROQUEL [Suspect]
     Dosage: EVERY TWO DAYS
     Route: 048
  11. SEROQUEL [Suspect]
     Route: 048
  12. SEROQUEL [Suspect]
     Route: 048
  13. NARDIL [Concomitant]
  14. CLONAZEPAM [Concomitant]
  15. ASPIRIN [Concomitant]
  16. MULTI-VITAMIN [Concomitant]
  17. ASCORBIC ACID [Concomitant]

REACTIONS (19)
  - AGITATION [None]
  - APTYALISM [None]
  - CONFUSIONAL STATE [None]
  - CONSTIPATION [None]
  - DEPRESSED MOOD [None]
  - DIABETES MELLITUS [None]
  - DRY MOUTH [None]
  - EATING DISORDER [None]
  - FEELING ABNORMAL [None]
  - HYPERTENSION [None]
  - HYPOTENSION [None]
  - INSOMNIA [None]
  - MANIA [None]
  - PERIODONTAL DISEASE [None]
  - RENAL IMPAIRMENT [None]
  - TOOTH DISORDER [None]
  - VISUAL IMPAIRMENT [None]
  - WEIGHT INCREASED [None]
  - WHITE BLOOD CELL COUNT DECREASED [None]
